FAERS Safety Report 22315363 (Version 2)
Quarter: 2023Q2

REPORT INFORMATION
  Report Type: Spontaneous
  Country: PT (occurrence: PT)
  Receive Date: 20230512
  Receipt Date: 20230606
  Transmission Date: 20230722
  Serious: Yes (Life-Threatening, Hospitalization, Disabling, Other)
  Sender: FDA-Public Use
  Company Number: PT-LUNDBECK-DKLU3061772

PATIENT
  Age: 35 Year
  Sex: Male
  Weight: 75 kg

DRUGS (1)
  1. BRINTELLIX [Suspect]
     Active Substance: VORTIOXETINE HYDROBROMIDE
     Indication: Anxiety
     Dosage: 10 MILLIGRAM, QD
     Route: 065
     Dates: start: 20230201, end: 20230421

REACTIONS (7)
  - Arrhythmia [Recovered/Resolved]
  - Tachycardia [Recovered/Resolved]
  - Supraventricular extrasystoles [Recovered/Resolved]
  - Ventricular extrasystoles [Recovered/Resolved]
  - Autonomic nervous system imbalance [Recovered/Resolved]
  - Product use in unapproved indication [Unknown]
  - Therapy cessation [Unknown]

NARRATIVE: CASE EVENT DATE: 20230215
